FAERS Safety Report 16875441 (Version 1)
Quarter: 2019Q4

REPORT INFORMATION
  Report Type: Spontaneous
  Country: US (occurrence: US)
  Receive Date: 20190807
  Receipt Date: 20190807
  Transmission Date: 20200122
  Serious: Yes (Hospitalization)
  Sender: FDA-Public Use
  Company Number: None

PATIENT
  Age: 78 Year
  Sex: Female
  Weight: 69.9 kg

DRUGS (2)
  1. CARBOPLATIN. [Suspect]
     Active Substance: CARBOPLATIN
     Dates: end: 20190725
  2. TAXOL [Suspect]
     Active Substance: PACLITAXEL
     Dates: end: 20190725

REACTIONS (7)
  - Intestinal dilatation [None]
  - Constipation [None]
  - Abdominal pain [None]
  - Nausea [None]
  - Neoplasm progression [None]
  - Faecaloma [None]
  - Vomiting [None]

NARRATIVE: CASE EVENT DATE: 20190731
